FAERS Safety Report 5900319-9 (Version None)
Quarter: 2008Q3

REPORT INFORMATION
  Report Type: 
  Country: None (occurrence: None)
  Receive Date: 20080926
  Receipt Date: 20080924
  Transmission Date: 20090109
  Serious: Yes (Other)
  Sender: FDA-Public Use
  Company Number: A0747644A

PATIENT
  Age: 51 Year
  Sex: Female

DRUGS (2)
  1. ALLI [Suspect]
     Indication: DRUG USE FOR UNKNOWN INDICATION
     Route: 048
  2. EFFEXOR [Concomitant]

REACTIONS (8)
  - ABDOMINAL PAIN LOWER [None]
  - COLITIS [None]
  - DIARRHOEA [None]
  - DYSPEPSIA [None]
  - HAEMATOCHEZIA [None]
  - RECTAL DISCHARGE [None]
  - SLEEP DISORDER [None]
  - STEATORRHOEA [None]
